FAERS Safety Report 10389373 (Version 2)
Quarter: 2014Q3

REPORT INFORMATION
  Report Type: Spontaneous
  Country: JP (occurrence: JP)
  Receive Date: 20140818
  Receipt Date: 20140818
  Transmission Date: 20150326
  Serious: Yes (Other)
  Sender: FDA-Public Use
  Company Number: JP-UCBSA-110760

PATIENT
  Age: 33 Year
  Sex: Female

DRUGS (1)
  1. KEPPRA [Suspect]
     Active Substance: LEVETIRACETAM
     Indication: EPILEPSY
     Dosage: 1500 MG, ONCE DAILY (QD)
     Route: 048
     Dates: start: 20120105

REACTIONS (3)
  - Shortened cervix [Unknown]
  - Pregnancy [Recovered/Resolved]
  - Polyhydramnios [Unknown]

NARRATIVE: CASE EVENT DATE: 2014
